FAERS Safety Report 10653968 (Version 1)
Quarter: 2014Q4

REPORT INFORMATION
  Report Type: Spontaneous
  Country: US (occurrence: US)
  Receive Date: 20141216
  Receipt Date: 20141216
  Transmission Date: 20150529
  Serious: Yes (Hospitalization)
  Sender: FDA-Public Use
  Company Number: US-JNJFOC-20141208238

PATIENT
  Age: 49 Year
  Sex: Male
  Weight: 92.08 kg

DRUGS (1)
  1. TYLENOL SINUS CONGESTION AND PAIN DAYTIME [Suspect]
     Active Substance: ACETAMINOPHEN\PHENYLEPHRINE HYDROCHLORIDE
     Indication: PRODUCT USED FOR UNKNOWN INDICATION
     Dosage: 2 CAPLETS AT A TIME ONCE A DAY WHEN NEEDED
     Route: 048
     Dates: start: 201410, end: 201410

REACTIONS (2)
  - Cerebrovascular accident [Recovering/Resolving]
  - Blood pressure increased [Recovering/Resolving]

NARRATIVE: CASE EVENT DATE: 20141028
